FAERS Safety Report 5793610-0 (Version None)
Quarter: 2008Q2

REPORT INFORMATION
  Report Type: 
  Country: None (occurrence: None)
  Receive Date: 20080627
  Receipt Date: 20080623
  Transmission Date: 20081010
  Serious: Yes (Hospitalization)
  Sender: FDA-Public Use
  Company Number: US-BRISTOL-MYERS SQUIBB COMPANY-14191225

PATIENT
  Age: 44 Year
  Sex: Female
  Weight: 53 kg

DRUGS (1)
  1. ERBITUX [Suspect]
     Indication: ADENOCARCINOMA OF THE CERVIX
     Route: 042
     Dates: start: 20080409, end: 20080430

REACTIONS (1)
  - SMALL INTESTINAL OBSTRUCTION [None]
